FAERS Safety Report 10204505 (Version 4)
Quarter: 2014Q3

REPORT INFORMATION
  Report Type: Spontaneous
  Country: US (occurrence: US)
  Receive Date: 20140529
  Receipt Date: 20140821
  Transmission Date: 20150326
  Serious: Yes (Hospitalization, Other)
  Sender: FDA-Public Use
  Company Number: US-BAYER-2014-076584

PATIENT
  Age: 26 Year
  Sex: Female
  Weight: 72.56 kg

DRUGS (1)
  1. MIRENA [Suspect]
     Active Substance: LEVONORGESTREL
     Indication: CONTRACEPTION
     Dosage: 20 MCG/24HR, CONT
     Route: 015
     Dates: start: 20100826, end: 20120513

REACTIONS (9)
  - Ruptured ectopic pregnancy [None]
  - Emotional distress [None]
  - Abdominal pain lower [None]
  - Drug ineffective [None]
  - Ectopic pregnancy with contraceptive device [None]
  - Injury [None]
  - Device issue [None]
  - Uterine perforation [None]
  - Vaginal haemorrhage [None]

NARRATIVE: CASE EVENT DATE: 201205
